FAERS Safety Report 17484391 (Version 4)
Quarter: 2020Q3

REPORT INFORMATION
  Report Type: Spontaneous
  Country: US (occurrence: US)
  Receive Date: 20200302
  Receipt Date: 20200918
  Transmission Date: 20201102
  Serious: Yes (Other)
  Sender: FDA-Public Use
  Company Number: US-GILEAD-2020-0452915

PATIENT
  Age: 51 Year
  Sex: Male
  Weight: 88.44 kg

DRUGS (50)
  1. TRUVADA [Suspect]
     Active Substance: EMTRICITABINE\TENOFOVIR DISOPROXIL FUMARATE
     Dosage: UNK
     Route: 048
     Dates: start: 20090225, end: 20100809
  2. AMOXICILLIN. [Concomitant]
     Active Substance: AMOXICILLIN
  3. EDURANT [Concomitant]
     Active Substance: RILPIVIRINE HYDROCHLORIDE
  4. NORVIR [Concomitant]
     Active Substance: RITONAVIR
  5. SUSTIVA [Concomitant]
     Active Substance: EFAVIRENZ
  6. COLACE [Concomitant]
     Active Substance: DOCUSATE SODIUM
  7. CIALIS [Concomitant]
     Active Substance: TADALAFIL
  8. AZT [Concomitant]
     Active Substance: ZIDOVUDINE
  9. FOSAMAX [Concomitant]
     Active Substance: ALENDRONATE SODIUM
  10. TETRACYCLINE [Concomitant]
     Active Substance: TETRACYCLINE
  11. VANCOMYCIN [Concomitant]
     Active Substance: VANCOMYCIN
  12. REYATAZ [Concomitant]
     Active Substance: ATAZANAVIR SULFATE
  13. LEVOFLOXACIN. [Concomitant]
     Active Substance: LEVOFLOXACIN
  14. ASPIRIN [ACETYLSALICYLIC ACID] [Concomitant]
     Active Substance: ASPIRIN
  15. BACTRIM [Concomitant]
     Active Substance: SULFAMETHOXAZOLE\TRIMETHOPRIM
  16. CORTISONE [Concomitant]
     Active Substance: CORTISONE
  17. PREDNISONE. [Concomitant]
     Active Substance: PREDNISONE
  18. PROZAC [Concomitant]
     Active Substance: FLUOXETINE HYDROCHLORIDE
  19. PEGINTERFERON ALFA?2A;RIBAVIRIN [Concomitant]
  20. MACROBID [CLARITHROMYCIN] [Concomitant]
     Active Substance: CLARITHROMYCIN
  21. OMEPRAZOLE. [Concomitant]
     Active Substance: OMEPRAZOLE
  22. ISENTRESS [Concomitant]
     Active Substance: RALTEGRAVIR POTASSIUM
  23. TIVICAY [Concomitant]
     Active Substance: DOLUTEGRAVIR SODIUM
  24. VIRAMUNE [Concomitant]
     Active Substance: NEVIRAPINE
  25. LIVALO [Concomitant]
     Active Substance: PITAVASTATIN CALCIUM
  26. IBUPROFEN. [Concomitant]
     Active Substance: IBUPROFEN
  27. CEFTRIAXONE. [Concomitant]
     Active Substance: CEFTRIAXONE
  28. INFLUENZA VACCINE [Concomitant]
     Active Substance: INFLUENZA VIRUS VACCINE
  29. HYDROCORTISONE. [Concomitant]
     Active Substance: HYDROCORTISONE
  30. TRUVADA [Suspect]
     Active Substance: EMTRICITABINE\TENOFOVIR DISOPROXIL FUMARATE
     Dosage: UNK
     Route: 065
     Dates: start: 20081203, end: 20100809
  31. GLUCOSAMINE CHONDROITIN [CHONDROITIN SULFATE;GLUCOSAMINE] [Concomitant]
  32. COMBIVIR [Concomitant]
     Active Substance: LAMIVUDINE\ZIDOVUDINE
  33. HEPATITIS A VACCINE [Concomitant]
     Active Substance: HEPATITIS A VIRUS STRAIN HM175 ANTIGEN (FORMALDEHYDE INACTIVATED)
  34. MARINOL [Concomitant]
     Active Substance: DRONABINOL
  35. FLEXERIL [CEFIXIME] [Concomitant]
     Active Substance: CEFIXIME
  36. ACETAMINOPHEN. [Concomitant]
     Active Substance: ACETAMINOPHEN
  37. CIPROFLOXACIN. [Concomitant]
     Active Substance: CIPROFLOXACIN
  38. MECLIZINE [Concomitant]
     Active Substance: MECLIZINE HYDROCHLORIDE
  39. SENNA S [Concomitant]
     Active Substance: DOCUSATE SODIUM\SENNA LEAF
  40. MACROBID [CLARITHROMYCIN] [Concomitant]
     Active Substance: CLARITHROMYCIN
  41. TRUVADA [Suspect]
     Active Substance: EMTRICITABINE\TENOFOVIR DISOPROXIL FUMARATE
     Indication: HIV INFECTION
     Dosage: UNK
     Route: 048
     Dates: start: 2007, end: 2010
  42. PENICILLIN [PENICILLIN NOS] [Concomitant]
     Active Substance: PENICILLIN
  43. KALETRA [Concomitant]
     Active Substance: LOPINAVIR\RITONAVIR
  44. ZIAGEN [Concomitant]
     Active Substance: ABACAVIR SULFATE
  45. TYLENOL WITH CODEINE [Concomitant]
     Active Substance: ACETAMINOPHEN\CODEINE PHOSPHATE
  46. VISIPAQUE [Concomitant]
     Active Substance: IODIXANOL
  47. SINEMET [Concomitant]
     Active Substance: CARBIDOPA\LEVODOPA
  48. TRAMADOL. [Concomitant]
     Active Substance: TRAMADOL
  49. VALTREX [Concomitant]
     Active Substance: VALACYCLOVIR HYDROCHLORIDE
  50. DITROPAN [Concomitant]
     Active Substance: OXYBUTYNIN CHLORIDE

REACTIONS (11)
  - Tooth loss [Unknown]
  - Tooth fracture [Unknown]
  - Economic problem [Unknown]
  - Osteoporosis [Not Recovered/Not Resolved]
  - Emotional distress [Unknown]
  - Pain [Unknown]
  - Anxiety [Unknown]
  - Renal impairment [Unknown]
  - Anhedonia [Unknown]
  - Osteopenia [Not Recovered/Not Resolved]
  - Bone density decreased [Unknown]

NARRATIVE: CASE EVENT DATE: 200909
